FAERS Safety Report 4684417-6 (Version None)
Quarter: 2005Q2

REPORT INFORMATION
  Report Type: 
  Country: None (occurrence: None)
  Receive Date: 20050531
  Receipt Date: 20040512
  Transmission Date: 20051028
  Serious: Yes (Other)
  Sender: FDA-Public Use
  Company Number: 200411853US

PATIENT
  Sex: Male

DRUGS (1)
  1. LOVENOX [Suspect]
     Indication: OPEN REDUCTION OF FRACTURE
     Dosage: 40 MG QD SC
     Route: 058
     Dates: start: 20040301

REACTIONS (1)
  - THROMBOCYTOPENIA [None]
